FAERS Safety Report 9998282 (Version 1)
Quarter: 2014Q1

REPORT INFORMATION
  Report Type: Spontaneous
  Country: US (occurrence: US)
  Receive Date: 20140312
  Receipt Date: 20140312
  Transmission Date: 20141002
  Serious: No
  Sender: FDA-Public Use
  Company Number: US-GILEAD-2014-0096407

PATIENT
  Sex: Male

DRUGS (3)
  1. SOVALDI [Suspect]
     Indication: CHRONIC HEPATITIS C
     Dosage: 400 MG, QD
     Route: 048
     Dates: start: 20140102
  2. SOVALDI [Suspect]
     Dosage: 400 MG, BID
     Route: 048
     Dates: start: 20140117, end: 20140117
  3. RIBAVIRIN [Concomitant]
     Indication: CHRONIC HEPATITIS C
     Dosage: 600 MG, BID
     Dates: start: 20140102

REACTIONS (1)
  - Accidental overdose [Recovered/Resolved]
